FAERS Safety Report 9353750 (Version 1)
Quarter: 2013Q2

REPORT INFORMATION
  Report Type: Spontaneous
  Country: US (occurrence: None)
  Receive Date: 20130617
  Receipt Date: 20130617
  Transmission Date: 20140414
  Serious: Yes (Hospitalization)
  Sender: FDA-Public Use
  Company Number: None

PATIENT
  Age: 46 Year
  Sex: Male
  Weight: 77.11 kg

DRUGS (1)
  1. LIDODERM PATCHES [Suspect]

REACTIONS (5)
  - Dizziness [None]
  - Chest pain [None]
  - Dyspnoea [None]
  - Heart rate increased [None]
  - Wrong technique in drug usage process [None]
